FAERS Safety Report 10413287 (Version 2)
Quarter: 2014Q3

REPORT INFORMATION
  Report Type: Spontaneous
  Country: AU (occurrence: AU)
  Receive Date: 20140827
  Receipt Date: 20140919
  Transmission Date: 20150326
  Serious: Yes (Death)
  Sender: FDA-Public Use
  Company Number: AU-PFIZER INC-2014234671

PATIENT
  Age: 53 Year
  Sex: Female
  Weight: 38 kg

DRUGS (5)
  1. AMBISONE [Suspect]
     Active Substance: AMPHOTERICIN B
     Indication: ASPERGILLUS INFECTION
  2. RANITIDINE [Concomitant]
     Active Substance: RANITIDINE\RANITIDINE HYDROCHLORIDE
  3. VFEND [Suspect]
     Active Substance: VORICONAZOLE
     Indication: ASPERGILLUS INFECTION
     Dosage: 200 MG, 2X/DAY
     Route: 048
  4. VFEND [Suspect]
     Active Substance: VORICONAZOLE
     Dosage: 4 MG/KG, 2X/DAY
     Route: 042
  5. VFEND [Suspect]
     Active Substance: VORICONAZOLE
     Indication: ASPERGILLUS INFECTION
     Dosage: 6 MG/KG, 2X/DAY (LOADING DOSE)
     Route: 042

REACTIONS (3)
  - Acute myeloid leukaemia [Fatal]
  - Pneumonia [Fatal]
  - Liver function test abnormal [Unknown]
